FAERS Safety Report 4915767-3 (Version None)
Quarter: 2006Q1

REPORT INFORMATION
  Report Type: 
  Country: None (occurrence: None)
  Receive Date: 20060113
  Receipt Date: 20050930
  Transmission Date: 20060701
  Serious: No
  Sender: FDA-Public Use
  Company Number: 2005SP003314

PATIENT
  Age: 67 Year
  Sex: Female

DRUGS (10)
  1. LUNESTA [Suspect]
     Indication: MIDDLE INSOMNIA
     Dosage: 2 MG;HS;ORAL
     Route: 048
     Dates: start: 20050901
  2. AMBIEN [Concomitant]
  3. LAMICTAL [Concomitant]
  4. ^GLAXOSMITHKLINE^ [Concomitant]
  5. KLONOPIN [Concomitant]
  6. TOLTEROIDINE [Concomitant]
  7. PRILOSEC [Concomitant]
  8. CALCIUM GLUCONATE [Concomitant]
  9. MULTIVITAMIN [Concomitant]
  10. ASPIRIN [Concomitant]

REACTIONS (2)
  - DRUG INEFFECTIVE [None]
  - MIDDLE INSOMNIA [None]
